FAERS Safety Report 15611159 (Version 1)
Quarter: 2018Q4

REPORT INFORMATION
  Report Type: Spontaneous
  Country: US (occurrence: US)
  Receive Date: 20181113
  Receipt Date: 20181113
  Transmission Date: 20190205
  Serious: No
  Sender: FDA-Public Use
  Company Number: US-IPSEN BIOPHARMACEUTICALS, INC.-2018-16770

PATIENT
  Sex: Female

DRUGS (2)
  1. DYSPORT [Suspect]
     Active Substance: ABOBOTULINUMTOXINA
     Indication: SKIN WRINKLING
     Dosage: 120 UNITS (GLABELLA AREA: 1:1 RATIO, CROW^S FEET: 3:1 RATIO)
     Dates: start: 20181022, end: 20181022
  2. DYSPORT [Suspect]
     Active Substance: ABOBOTULINUMTOXINA
     Indication: SKIN WRINKLING

REACTIONS (4)
  - Overdose [Unknown]
  - Injection site erythema [Recovered/Resolved]
  - Intentional product misuse [Unknown]
  - Injection site pain [Recovered/Resolved]

NARRATIVE: CASE EVENT DATE: 20181023
